FAERS Safety Report 8967205 (Version 2)
Quarter: 2013Q2

REPORT INFORMATION
  Report Type: Spontaneous
  Country: US (occurrence: US)
  Receive Date: 20121214
  Receipt Date: 20130423
  Transmission Date: 20140414
  Serious: No
  Sender: FDA-Public Use
  Company Number: 2012SP003406

PATIENT
  Age: 47 Year
  Sex: Female
  Weight: 113 kg

DRUGS (7)
  1. LATUDA [Suspect]
     Indication: PSYCHOTIC DISORDER
     Route: 048
     Dates: start: 20120424, end: 20120425
  2. ZOLOFT [Concomitant]
     Indication: DEPRESSION
     Dates: start: 20120523
  3. ATIVAN [Concomitant]
     Indication: ANXIETY
     Dates: start: 20120115
  4. TRAZODONE [Concomitant]
     Indication: INSOMNIA
     Dates: start: 20120105
  5. SAPHRIS [Concomitant]
     Indication: PSYCHOTIC DISORDER
  6. FANAPT [Concomitant]
     Indication: PSYCHOTIC DISORDER
  7. PERPHENAZINE [Concomitant]
     Indication: PSYCHOTIC DISORDER

REACTIONS (1)
  - Urticaria [Recovered/Resolved]
